FAERS Safety Report 7428351-7 (Version None)
Quarter: 2011Q2

REPORT INFORMATION
  Report Type: 
  Country: None (occurrence: None)
  Receive Date: 20110418
  Receipt Date: 20110418
  Transmission Date: 20111010
  Serious: Yes (Life-Threatening, Other)
  Sender: FDA-Public Use
  Company Number: None

PATIENT
  Age: 56 Year
  Sex: Female
  Weight: 58.0604 kg

DRUGS (1)
  1. DYSPORT [Suspect]
     Dosage: 10 UNITS
     Dates: start: 20110415, end: 20110415

REACTIONS (10)
  - PARAESTHESIA [None]
  - NAUSEA [None]
  - BURNING SENSATION [None]
  - LOSS OF CONSCIOUSNESS [None]
  - ERYTHEMA [None]
  - HOT FLUSH [None]
  - DIZZINESS [None]
  - ANXIETY [None]
  - ASTHENIA [None]
  - FEAR [None]
